FAERS Safety Report 18206631 (Version 1)
Quarter: 2020Q3

REPORT INFORMATION
  Report Type: Spontaneous
  Country: TW (occurrence: TW)
  Receive Date: 20200828
  Receipt Date: 20200828
  Transmission Date: 20201103
  Serious: Yes (Other)
  Sender: FDA-Public Use
  Company Number: TW-BAXTER-2020BAX017437

PATIENT
  Age: 25 Day

DRUGS (2)
  1. TISSEEL [Suspect]
     Active Substance: FIBRINOGEN HUMAN\THROMBIN HUMAN
     Indication: TISSUE SEALING
     Dosage: 4 ML
     Route: 065
     Dates: start: 20200722
  2. TISSEEL [Suspect]
     Active Substance: FIBRINOGEN HUMAN\THROMBIN HUMAN
     Dosage: WITH HEMOPATCH
     Route: 065
     Dates: start: 20200722

REACTIONS (3)
  - Intestinal obstruction [Unknown]
  - Adhesion [Unknown]
  - Gastrointestinal inflammation [Unknown]
